FAERS Safety Report 16152691 (Version 2)
Quarter: 2019Q2

REPORT INFORMATION
  Report Type: Spontaneous
  Country: US (occurrence: US)
  Receive Date: 20190403
  Receipt Date: 20190409
  Transmission Date: 20190711
  Serious: Yes (Other)
  Sender: FDA-Public Use
  Company Number: US-ROCHE-2293655

PATIENT
  Age: 57 Year
  Sex: Female

DRUGS (2)
  1. COPAXONE [Concomitant]
     Active Substance: GLATIRAMER ACETATE
     Route: 065
     Dates: start: 2007, end: 2018
  2. OCREVUS [Suspect]
     Active Substance: OCRELIZUMAB
     Indication: PRODUCT USED FOR UNKNOWN INDICATION
     Dosage: ONGOING: NO
     Route: 065
     Dates: start: 201810

REACTIONS (4)
  - Bone cancer metastatic [Unknown]
  - Pain [Unknown]
  - Breast cancer [Unknown]
  - Breast discomfort [Unknown]
